FAERS Safety Report 4478379-4 (Version None)
Quarter: 2004Q4

REPORT INFORMATION
  Report Type: 
  Country: None (occurrence: None)
  Receive Date: 20041019
  Receipt Date: 20030721
  Transmission Date: 20050328
  Serious: Yes (Hospitalization)
  Sender: FDA-Public Use
  Company Number: PHFR2003GB02887

PATIENT
  Age: 43 Year
  Sex: Male

DRUGS (6)
  1. TERBINAFINE [Suspect]
     Indication: NAIL TINEA
     Dosage: 250 MG, QD
     Route: 048
     Dates: start: 20030512, end: 20030619
  2. NELFINAVIR [Concomitant]
     Dosage: 1250 MG, BID
     Route: 048
  3. DDI [Concomitant]
     Dosage: 400MG/DAY
     Route: 048
  4. ZIDOVUDINE [Concomitant]
     Dosage: 250 MG, BID
     Route: 048
  5. ATORVASTATIN CALCIUM [Concomitant]
     Dosage: 10MG/DAY
     Route: 048
  6. FLECAINIDE ACETATE [Concomitant]
     Dosage: 50 MG, BID
     Route: 048

REACTIONS (6)
  - ALANINE AMINOTRANSFERASE INCREASED [None]
  - BLOOD BILIRUBIN INCREASED [None]
  - CIRCULATORY COLLAPSE [None]
  - GAMMA-GLUTAMYLTRANSFERASE INCREASED [None]
  - LIVER FUNCTION TEST ABNORMAL [None]
  - LOSS OF CONSCIOUSNESS [None]
